FAERS Safety Report 5371284-0 (Version None)
Quarter: 2007Q2

REPORT INFORMATION
  Report Type: 
  Country: None (occurrence: None)
  Receive Date: 20070615
  Receipt Date: 20061109
  Transmission Date: 20071010
  Serious: Yes (Other)
  Sender: FDA-Public Use
  Company Number: 200618668US

PATIENT
  Sex: Female

DRUGS (4)
  1. LANTUS [Suspect]
     Dates: start: 20061001
  2. OPTICLIK [Suspect]
     Dates: start: 20061001
  3. INSULIN HUMAN INJECTION [Concomitant]
  4. ISOPHANE (NOVOLIN N) [Concomitant]

REACTIONS (1)
  - HYPERGLYCAEMIA [None]
